FAERS Safety Report 6912592-9 (Version None)
Quarter: 2010Q3

REPORT INFORMATION
  Report Type: 
  Country: None (occurrence: None)
  Receive Date: 20100806
  Receipt Date: 20080919
  Transmission Date: 20110219
  Serious: Yes (Other)
  Sender: FDA-Public Use
  Company Number: US-PFIZER INC-2008053754

PATIENT
  Sex: Female
  Weight: 45.4 kg

DRUGS (4)
  1. DETROL LA [Suspect]
     Indication: INCONTINENCE
     Dates: start: 20080101, end: 20080101
  2. XANAX [Concomitant]
  3. TRAMADOL HYDROCHLORIDE [Concomitant]
  4. LISINOPRIL [Concomitant]

REACTIONS (6)
  - CONDITION AGGRAVATED [None]
  - DRUG INEFFECTIVE [None]
  - DYSPNOEA [None]
  - HYPERSENSITIVITY [None]
  - JAW DISORDER [None]
  - SWELLING FACE [None]
